FAERS Safety Report 25790549 (Version 1)
Quarter: 2025Q3

REPORT INFORMATION
  Report Type: Spontaneous
  Country: EU (occurrence: EU)
  Receive Date: 20250911
  Receipt Date: 20250911
  Transmission Date: 20251020
  Serious: Yes (Other)
  Sender: AUROBINDO
  Company Number: EU-LRB-01080518

PATIENT
  Age: 53 Year
  Sex: Female
  Weight: 72 kg

DRUGS (1)
  1. METRONIDAZOLE [Suspect]
     Active Substance: METRONIDAZOLE
     Indication: Gingivitis
     Dosage: 250 MILLIGRAM, 3 TIMES A DAY (3 X DGS 1)
     Route: 048
     Dates: start: 20250813, end: 20250816

REACTIONS (1)
  - Hemiparaesthesia [Recovering/Resolving]
